FAERS Safety Report 4431323-8 (Version None)
Quarter: 2004Q3

REPORT INFORMATION
  Report Type: 
  Country: None (occurrence: None)
  Receive Date: 20040817
  Receipt Date: 20040810
  Transmission Date: 20050211
  Serious: Yes (Other)
  Sender: FDA-Public Use
  Company Number: 2004227618AU

PATIENT
  Age: 75 Year
  Sex: Female

DRUGS (4)
  1. MACRODANTIN [Suspect]
     Indication: URINARY TRACT DISORDER
     Dosage: 100 MG, DAILY,
     Dates: start: 19940801, end: 19950120
  2. CLAVUMOX (CLAVULANATE POTASSIUM, AMOXICILLIN) TABLET [Suspect]
     Dosage: 1.5 G, DAILY,
     Dates: start: 19950110, end: 19950116
  3. ENALAPRIL MALEATE [Suspect]
     Indication: CARDIAC FAILURE CONGESTIVE
     Dosage: 5 MG, DAILY, ORAL
     Route: 048
     Dates: start: 19950113, end: 19950120
  4. DELTA-CORTEF [Suspect]
     Dosage: 1 MG, DAILY, ORAL
     Route: 048
     Dates: end: 19950119

REACTIONS (3)
  - HEPATITIS [None]
  - MALAISE [None]
  - PULMONARY FIBROSIS [None]
